FAERS Safety Report 26005575 (Version 2)
Quarter: 2025Q4

REPORT INFORMATION
  Report Type: Spontaneous
  Country: EU (occurrence: EU)
  Receive Date: 20251106
  Receipt Date: 20251118
  Transmission Date: 20260118
  Serious: Yes (Other)
  Sender: GILEAD
  Company Number: EU-GILEAD-2025-0734335

PATIENT
  Sex: Female

DRUGS (1)
  1. TRODELVY [Suspect]
     Active Substance: SACITUZUMAB GOVITECAN-HZIY
     Indication: Product used for unknown indication
     Dosage: 10 MG/KG
     Route: 065
     Dates: start: 202509

REACTIONS (1)
  - Thrombocytopenia [Not Recovered/Not Resolved]
